FAERS Safety Report 5248632-5 (Version None)
Quarter: 2007Q1

REPORT INFORMATION
  Report Type: 
  Country: None (occurrence: None)
  Receive Date: 20070222
  Receipt Date: 20070212
  Transmission Date: 20070707
  Serious: Yes (Other)
  Sender: FDA-Public Use
  Company Number: 236311

PATIENT
  Age: 48 Year
  Sex: Male
  Weight: 106.6 kg

DRUGS (11)
  1. XOLAIR [Suspect]
     Indication: ASTHMA
     Dosage: 300 MG, Q2W, SUBCUTANEOUS
     Route: 058
     Dates: start: 20051001
  2. PREDNISONE TAB [Concomitant]
  3. ADVAIR DISKUS 100/50 [Concomitant]
  4. THEOPHYLLINE [Concomitant]
  5. ZYFLO [Concomitant]
  6. ALBUTEROL (ALBUTEROL/ALBUTEROL SULFATE) [Concomitant]
  7. ATROVENT [Concomitant]
  8. DUONEB (ALBUTEROL, ALBUTEROL SULFATE, IPRATROPIUM BROMIDE) [Concomitant]
  9. PREVACID [Concomitant]
  10. HYDROCHLOROTHIAZIDE [Concomitant]
  11. EPIDURAL STEROID (STEROID NOS) [Concomitant]

REACTIONS (4)
  - ABDOMINAL PAIN UPPER [None]
  - CHEST DISCOMFORT [None]
  - DYSPNOEA [None]
  - WHEEZING [None]
